FAERS Safety Report 8671257 (Version 2)
Quarter: 2012Q4

REPORT INFORMATION
  Report Type: 
  Country: US (occurrence: US)
  Receive Date: 20120718
  Receipt Date: 20120904
  Transmission Date: 20130627
  Serious: Yes (Hospitalization)
  Sender: FDA-Public Use
  Company Number: US-GILEAD-2012-0057967

PATIENT
  Sex: Male

DRUGS (2)
  1. LETAIRIS [Suspect]
     Indication: PULMONARY HYPERTENSION
     Dosage: 5 mg, UNK
     Route: 048
     Dates: start: 20110520
  2. LETAIRIS [Suspect]
     Indication: EISENMENGER^S SYNDROME

REACTIONS (2)
  - Pleural effusion [Unknown]
  - Chest tube insertion [Unknown]
